FAERS Safety Report 6313795-7 (Version None)
Quarter: 2009Q3

REPORT INFORMATION
  Report Type: 
  Country: None (occurrence: None)
  Receive Date: 20090818
  Receipt Date: 20090306
  Transmission Date: 20100115
  Serious: No
  Sender: FDA-Public Use
  Company Number: US-BRISTOL-MYERS SQUIBB COMPANY-14536593

PATIENT

DRUGS (4)
  1. REYATAZ [Suspect]
  2. RITONAVIR [Suspect]
  3. TENOFOVIR [Suspect]
  4. ABACAVIR [Suspect]

REACTIONS (2)
  - ACCIDENTAL OVERDOSE [None]
  - NO ADVERSE EVENT [None]
